FAERS Safety Report 17555975 (Version 1)
Quarter: 2020Q1

REPORT INFORMATION
  Report Type: Spontaneous
  Country: FR (occurrence: FR)
  Receive Date: 20200318
  Receipt Date: 20200318
  Transmission Date: 20200409
  Serious: Yes (Other)
  Sender: FDA-Public Use
  Company Number: FR-MYLANLABS-2020M1027305

PATIENT
  Age: 7 Day
  Sex: Male

DRUGS (6)
  1. SUFENTANIL [Concomitant]
     Active Substance: SUFENTANIL
     Dosage: UNK
  2. INSULINE                           /01223401/ [Concomitant]
     Active Substance: INSULIN NOS
     Dosage: UNK
  3. MIDAZOLAM MYLAN [Suspect]
     Active Substance: MIDAZOLAM HYDROCHLORIDE
     Indication: SEDATION
     Dosage: UNK (50 MCG/KG/H)
     Route: 041
     Dates: start: 20200123, end: 20200124
  4. VANCOMYCINE SANDOZ [Suspect]
     Active Substance: VANCOMYCIN
     Indication: ANTIBIOTIC THERAPY
     Dosage: 13.7 MILLIGRAM, QD
     Route: 042
     Dates: start: 20200124, end: 20200125
  5. CEFOTAXIME [Suspect]
     Active Substance: CEFOTAXIME SODIUM
     Indication: ANTIBIOTIC THERAPY
     Dosage: 70 MILLIGRAM, TOTAL
     Route: 042
     Dates: start: 20200123, end: 20200125
  6. CAFEINE [Concomitant]
     Active Substance: CAFFEINE
     Dosage: UNK

REACTIONS (1)
  - Acute kidney injury [Recovered/Resolved]

NARRATIVE: CASE EVENT DATE: 20200125
